FAERS Safety Report 19881648 (Version 1)
Quarter: 2021Q3

REPORT INFORMATION
  Report Type: Report from Study
  Country: EG (occurrence: EG)
  Receive Date: 20210925
  Receipt Date: 20210925
  Transmission Date: 20211014
  Serious: Yes (Hospitalization)
  Sender: FDA-Public Use
  Company Number: NVSC2021EG215878

PATIENT
  Sex: Female

DRUGS (4)
  1. SODIUM PHOSPHATE [Concomitant]
     Active Substance: SODIUM PHOSPHATE
     Indication: PRODUCT USED FOR UNKNOWN INDICATION
     Dosage: 5 CM, BID
     Route: 065
     Dates: start: 20191119
  2. OMNITROPE [Suspect]
     Active Substance: SOMATROPIN
     Indication: GROWTH HORMONE DEFICIENCY
     Dosage: 0.7 MG, QW (STOPPED AFTER 5?6 PACKS USED)
     Route: 058
     Dates: start: 20191119
  3. ONE ALPHA [Concomitant]
     Active Substance: ALFACALCIDOL
     Indication: PRODUCT USED FOR UNKNOWN INDICATION
     Dosage: 5 DRP, QD (STARTED 6 MONTHS AGO AND STOPPED AFTER THE SURGERY [40 DAYS AGO AS)
     Route: 065
  4. OSTEOCARE [Concomitant]
     Active Substance: CALCIUM\CHOLECALCIFEROL\MAGNESIUM\ZINC
     Indication: PRODUCT USED FOR UNKNOWN INDICATION
     Dosage: 5 CM, QD
     Route: 065

REACTIONS (2)
  - Product availability issue [Recovering/Resolving]
  - Limb deformity [Recovered/Resolved]
